FAERS Safety Report 22011091 (Version 1)
Quarter: 2023Q1

REPORT INFORMATION
  Report Type: Spontaneous
  Country: US (occurrence: US)
  Receive Date: 20230220
  Receipt Date: 20230220
  Transmission Date: 20230417
  Serious: Yes (Other)
  Sender: FDA-Public Use
  Company Number: US-BAYER-2023A016645

PATIENT
  Sex: Male

DRUGS (2)
  1. KERENDIA [Interacting]
     Active Substance: FINERENONE
     Dosage: UNK
     Dates: end: 20230126
  2. IRBESARTAN [Interacting]
     Active Substance: IRBESARTAN

REACTIONS (3)
  - Hyperkalaemia [None]
  - Off label use [None]
  - Drug interaction [None]

NARRATIVE: CASE EVENT DATE: 20230126
